FAERS Safety Report 19903600 (Version 1)
Quarter: 2021Q4

REPORT INFORMATION
  Report Type: Spontaneous
  Country: FR (occurrence: FR)
  Receive Date: 20211001
  Receipt Date: 20211001
  Transmission Date: 20220303
  Serious: Yes (Hospitalization, Other)
  Sender: FDA-Public Use
  Company Number: FR-ROCHE-2923079

PATIENT
  Age: 3 Year
  Weight: 11 kg

DRUGS (1)
  1. EVRYSDI [Suspect]
     Active Substance: RISDIPLAM
     Indication: Spinal muscular atrophy
     Route: 065
     Dates: start: 20210616

REACTIONS (2)
  - Dyspnoea [Unknown]
  - Blister [Unknown]

NARRATIVE: CASE EVENT DATE: 20210923
